FAERS Safety Report 9736008 (Version 1)
Quarter: 2013Q4

REPORT INFORMATION
  Report Type: Spontaneous
  Country: US (occurrence: US)
  Receive Date: 20131206
  Receipt Date: 20131206
  Transmission Date: 20140711
  Serious: Yes (Other)
  Sender: FDA-Public Use
  Company Number: US-BRISTOL-MYERS SQUIBB COMPANY-19858596

PATIENT
  Age: 31 Year
  Sex: Female
  Weight: 51.25 kg

DRUGS (1)
  1. KENALOG INJ [Suspect]
     Dates: start: 201310

REACTIONS (14)
  - Pelvic pain [Unknown]
  - Arthralgia [Unknown]
  - Motor dysfunction [Unknown]
  - Atrophy [Unknown]
  - Palpitations [Unknown]
  - Hypertension [Unknown]
  - Hyperhidrosis [Unknown]
  - Migraine [Unknown]
  - Abdominal discomfort [Unknown]
  - Vomiting [Unknown]
  - Visual impairment [Unknown]
  - Hypoaesthesia [Unknown]
  - Oligomenorrhoea [Unknown]
  - Balance disorder [Unknown]
